FAERS Safety Report 15603946 (Version 6)
Quarter: 2019Q4

REPORT INFORMATION
  Report Type: Spontaneous
  Country: US (occurrence: US)
  Receive Date: 20181109
  Receipt Date: 20191014
  Transmission Date: 20200122
  Serious: No
  Sender: FDA-Public Use
  Company Number: US-BIOGEN-2018BI00653838

PATIENT
  Sex: Female

DRUGS (4)
  1. TECFIDERA [Suspect]
     Active Substance: DIMETHYL FUMARATE
     Indication: MULTIPLE SCLEROSIS
     Route: 050
     Dates: start: 20180604
  2. TECFIDERA [Suspect]
     Active Substance: DIMETHYL FUMARATE
     Dosage: STARTING DOSE
     Route: 048
     Dates: start: 201805
  3. TECFIDERA [Suspect]
     Active Substance: DIMETHYL FUMARATE
     Dosage: TAKE 1 CAPSULE BY?MOUTH TWICE A DAY
     Route: 050
  4. AMPYRA [Concomitant]
     Active Substance: DALFAMPRIDINE
     Indication: GAIT DISTURBANCE
     Route: 050
     Dates: start: 20100517, end: 201805

REACTIONS (6)
  - Gait disturbance [Not Recovered/Not Resolved]
  - Mobility decreased [Unknown]
  - Muscular weakness [Unknown]
  - Multiple sclerosis [Unknown]
  - Central nervous system lesion [Unknown]
  - Hypokinesia [Recovered/Resolved]
